FAERS Safety Report 17033957 (Version 1)
Quarter: 2019Q4

REPORT INFORMATION
  Report Type: Report from Study
  Country: US (occurrence: US)
  Receive Date: 20191114
  Receipt Date: 20191114
  Transmission Date: 20200122
  Serious: Yes (Hospitalization, Other)
  Sender: FDA-Public Use
  Company Number: US-ACTELION-A-NJ2019-191723

PATIENT
  Age: 69 Year
  Sex: Female
  Weight: 99.77 kg

DRUGS (6)
  1. UPTRAVI [Suspect]
     Active Substance: SELEXIPAG
     Dosage: 400 MCG, BID
     Route: 048
     Dates: start: 201906
  2. UPTRAVI [Suspect]
     Active Substance: SELEXIPAG
     Dosage: 1000 MCG, BID
     Route: 048
  3. OPSUMIT [Suspect]
     Active Substance: MACITENTAN
     Indication: PULMONARY ARTERIAL HYPERTENSION
     Dosage: 10 MG, QD
     Route: 048
  4. UPTRAVI [Suspect]
     Active Substance: SELEXIPAG
     Indication: PULMONARY ARTERIAL HYPERTENSION
     Dosage: 600 MCG, BID
     Route: 048
  5. ADEMPAS [Concomitant]
     Active Substance: RIOCIGUAT
  6. UPTRAVI [Suspect]
     Active Substance: SELEXIPAG
     Dosage: 1600 MCG, BID
     Route: 048

REACTIONS (10)
  - Pulmonary arterial hypertension [Unknown]
  - Hospitalisation [Unknown]
  - Hypotension [Unknown]
  - Drug intolerance [Unknown]
  - Dyspnoea [Unknown]
  - Fluid retention [Unknown]
  - Dyspnoea exertional [Not Recovered/Not Resolved]
  - Oxygen saturation decreased [Unknown]
  - Headache [Unknown]
  - Liver disorder [Unknown]

NARRATIVE: CASE EVENT DATE: 20190602
